FAERS Safety Report 19709817 (Version 1)
Quarter: 2021Q3

REPORT INFORMATION
  Report Type: Spontaneous
  Country: JP (occurrence: JP)
  Receive Date: 20210816
  Receipt Date: 20210816
  Transmission Date: 20211014
  Serious: Yes (Other)
  Sender: FDA-Public Use
  Company Number: JP-AMNEAL PHARMACEUTICALS-2021-AMRX-03245

PATIENT
  Age: 69 Year
  Sex: Male

DRUGS (1)
  1. ALBENZA [Suspect]
     Active Substance: ALBENDAZOLE
     Indication: PULMONARY ECHINOCOCCIASIS
     Dosage: UNK
     Route: 048

REACTIONS (3)
  - Liver disorder [Unknown]
  - Pulmonary echinococciasis [Recovered/Resolved]
  - Condition aggravated [Recovered/Resolved]
